FAERS Safety Report 15094189 (Version 2)
Quarter: 2018Q3

REPORT INFORMATION
  Report Type: Report from Study
  Country: DE (occurrence: DE)
  Receive Date: 20180630
  Receipt Date: 20180906
  Transmission Date: 20181010
  Serious: Yes (Hospitalization)
  Sender: FDA-Public Use
  Company Number: DE-AMGEN-DEUNI2018088744

PATIENT
  Age: 75 Year
  Sex: Male

DRUGS (1)
  1. ETANERCEPT [Suspect]
     Active Substance: ETANERCEPT
     Indication: RHEUMATOID ARTHRITIS
     Dosage: 50 MG, EVERY 8 DAYS
     Route: 065
     Dates: end: 20180228

REACTIONS (1)
  - Anti-neutrophil cytoplasmic antibody positive vasculitis [Recovered/Resolved]

NARRATIVE: CASE EVENT DATE: 20180228
